FAERS Safety Report 22342086 (Version 2)
Quarter: 2023Q2

REPORT INFORMATION
  Report Type: Report from Study
  Country: NL (occurrence: NL)
  Receive Date: 20230519
  Receipt Date: 20230523
  Transmission Date: 20230721
  Serious: No
  Sender: FDA-Public Use
  Company Number: NL-ABBVIE-4267221

PATIENT
  Age: 62 Year
  Sex: Female

DRUGS (5)
  1. CARBIDOPA\LEVODOPA [Suspect]
     Active Substance: CARBIDOPA\LEVODOPA
     Indication: Parkinson^s disease
     Dosage: MD 5.0 ML CD 2.0ML/H ED 0.0ML CDN 2.0MML/H?REMAINS AT 24 HOURS
     Route: 050
  2. CARBIDOPA\LEVODOPA [Suspect]
     Active Substance: CARBIDOPA\LEVODOPA
     Dosage: REMAINS AT 24 HOURS
     Route: 050
     Dates: start: 20141211
  3. CARBIDOPA\LEVODOPA [Suspect]
     Active Substance: CARBIDOPA\LEVODOPA
     Dosage: MD 5.0 CD 1.8 ED 0.0 CDN 1.8?REMAINS AT 24 HOURS?FIRST ADMIN DATE?10 JAN 2023?LAST ADMIN DATE?10 ...
     Route: 050
  4. CARBIDOPA\LEVODOPA [Suspect]
     Active Substance: CARBIDOPA\LEVODOPA
     Dosage: MD 5.0 ML CD 2.0ML/H ED 0.0ML CDN 2.0MML/H
     Route: 050
  5. CARBIDOPA\LEVODOPA [Suspect]
     Active Substance: CARBIDOPA\LEVODOPA
     Dosage: MD 4.0 ML CD 2.0ML/H ED 0.0 ML CDN 2.0 ML/H?REMAINS AT 24 HOURS
     Route: 050

REACTIONS (22)
  - Intentional product misuse [Not Recovered/Not Resolved]
  - Unevaluable event [Not Recovered/Not Resolved]
  - Restlessness [Recovering/Resolving]
  - Anxiety [Recovering/Resolving]
  - Loss of personal independence in daily activities [Not Recovered/Not Resolved]
  - Hallucination [Not Recovered/Not Resolved]
  - Euphoric mood [Not Recovered/Not Resolved]
  - Dyskinesia [Recovering/Resolving]
  - Mental disorder [Not Recovered/Not Resolved]
  - Autophobia [Not Recovered/Not Resolved]
  - Freezing phenomenon [Not Recovered/Not Resolved]
  - Fear [Not Recovered/Not Resolved]
  - Unevaluable event [Recovering/Resolving]
  - Hyperkinesia [Not Recovered/Not Resolved]
  - Mobility decreased [Not Recovered/Not Resolved]
  - Muscle rigidity [Not Recovered/Not Resolved]
  - Unevaluable event [Not Recovered/Not Resolved]
  - Muscle spasms [Not Recovered/Not Resolved]
  - Tremor [Not Recovered/Not Resolved]
  - On and off phenomenon [Not Recovered/Not Resolved]
  - Dyskinesia [Not Recovered/Not Resolved]
  - Therapeutic product effect decreased [Unknown]

NARRATIVE: CASE EVENT DATE: 20230101
